FAERS Safety Report 10369126 (Version 3)
Quarter: 2016Q1

REPORT INFORMATION
  Report Type: Spontaneous
  Country: US (occurrence: US)
  Receive Date: 20140807
  Receipt Date: 20160119
  Transmission Date: 20160525
  Serious: Yes (Death, Hospitalization, Other)
  Sender: FDA-Public Use
  Company Number: US-PFIZER INC-2014214652

PATIENT
  Age: 76 Year
  Sex: Male

DRUGS (10)
  1. WARFARIN [Concomitant]
     Active Substance: WARFARIN
     Dosage: UNK
  2. NEURONTIN [Concomitant]
     Active Substance: GABAPENTIN
     Dosage: UNK
  3. ASPIRIN. [Concomitant]
     Active Substance: ASPIRIN
     Dosage: UNK
  4. PEPCID [Concomitant]
     Active Substance: FAMOTIDINE
     Dosage: UNK
  5. LOSARTAN. [Concomitant]
     Active Substance: LOSARTAN
     Dosage: UNK
  6. LIPITOR [Suspect]
     Active Substance: ATORVASTATIN CALCIUM
     Dosage: 40 MG, DAILY
     Route: 065
  7. COREG [Suspect]
     Active Substance: CARVEDILOL
     Indication: CARDIAC FAILURE
     Dosage: 12.5 MG, UNK
     Dates: start: 2003
  8. COREG [Suspect]
     Active Substance: CARVEDILOL
     Indication: CARDIAC DISORDER
     Dosage: 12.5 MG, UNK
  9. COREG [Suspect]
     Active Substance: CARVEDILOL
     Indication: BLOOD PRESSURE MEASUREMENT
     Dosage: 12.5 MG, 2X/DAY
     Route: 048
     Dates: start: 2009
  10. SIMVASTATIN. [Concomitant]
     Active Substance: SIMVASTATIN
     Dosage: UNK

REACTIONS (26)
  - Pneumonia [Unknown]
  - Coronary artery bypass [Unknown]
  - Colon cancer [Unknown]
  - Myocardial infarction [Unknown]
  - Pyrexia [Unknown]
  - Atrioventricular block [Unknown]
  - Mass [Unknown]
  - Hypoacusis [Unknown]
  - Memory impairment [Unknown]
  - Choking sensation [Recovered/Resolved]
  - Intestinal mass [Unknown]
  - Sepsis [Unknown]
  - Angina pectoris [Unknown]
  - Infection [Unknown]
  - Movement disorder [Unknown]
  - Musculoskeletal pain [Unknown]
  - Cardioversion [Unknown]
  - Functional gastrointestinal disorder [Unknown]
  - Death [Fatal]
  - Throat irritation [Recovered/Resolved]
  - Sleep apnoea syndrome [Recovering/Resolving]
  - Dementia Alzheimer^s type [Unknown]
  - Volume blood decreased [Unknown]
  - Pain in extremity [Recovered/Resolved]
  - Neoplasm malignant [Unknown]
  - Dysstasia [Unknown]

NARRATIVE: CASE EVENT DATE: 20141231
